FAERS Safety Report 6626305-1 (Version None)
Quarter: 2010Q1

REPORT INFORMATION
  Report Type: 
  Country: None (occurrence: None)
  Receive Date: 20100310
  Receipt Date: 20090504
  Transmission Date: 20100710
  Serious: No
  Sender: FDA-Public Use
  Company Number: US-ABBOTT-09P-163-0571605-00

PATIENT
  Weight: 84.898 kg

DRUGS (5)
  1. LUPRON DEPOT [Suspect]
     Indication: POLYCYSTIC OVARIES
     Route: 030
     Dates: start: 20090414, end: 20090414
  2. LUPRON DEPOT [Suspect]
     Route: 030
     Dates: start: 20080820, end: 20080820
  3. VELIVET [Concomitant]
     Indication: CONTRACEPTION
     Route: 062
     Dates: end: 20090501
  4. GLUCOPHAGE [Concomitant]
     Indication: POLYCYSTIC OVARIES
     Route: 048
  5. LEXAPRO [Concomitant]
     Indication: EMOTIONAL DISORDER
     Route: 048
     Dates: start: 20090101

REACTIONS (3)
  - ABDOMINAL PAIN [None]
  - EMOTIONAL DISORDER [None]
  - ENDOMETRIOSIS [None]
